FAERS Safety Report 14420935 (Version 7)
Quarter: 2018Q2

REPORT INFORMATION
  Report Type: Spontaneous
  Country: SK (occurrence: SK)
  Receive Date: 20180122
  Receipt Date: 20180629
  Transmission Date: 20180711
  Serious: Yes (Hospitalization, Other)
  Sender: FDA-Public Use
  Company Number: SK-PFIZER INC-2018025686

PATIENT
  Age: 56 Year
  Sex: Female

DRUGS (11)
  1. PEMETREXED. [Suspect]
     Active Substance: PEMETREXED
     Indication: LUNG ADENOCARCINOMA
     Dosage: UNK UNK, CYCLIC (6 CYCLES PLUS CISPLATIN)
  2. GEMCITABINE [Concomitant]
     Active Substance: GEMCITABINE\GEMCITABINE HYDROCHLORIDE
     Indication: LUNG ADENOCARCINOMA
  3. CARBOPLATIN. [Concomitant]
     Active Substance: CARBOPLATIN
     Indication: LUNG ADENOCARCINOMA
  4. CISPLATIN. [Suspect]
     Active Substance: CISPLATIN
     Dosage: UNK, CYCLIC (6 CYCLES WITH  PEMETREXED)
  5. CISPLATIN. [Suspect]
     Active Substance: CISPLATIN
     Indication: LUNG ADENOCARCINOMA
     Dosage: UNK UNK, CYCLIC (3 CYCLES)
  6. PEMETREXED. [Suspect]
     Active Substance: PEMETREXED
     Dosage: UNK UNK, CYCLIC (3 CYCLES AS SINGLE THERAPY)
  7. CRIZOTINIB [Suspect]
     Active Substance: CRIZOTINIB
     Indication: LUNG ADENOCARCINOMA
     Dosage: UNK
     Dates: start: 201510
  8. DOCETAXEL. [Suspect]
     Active Substance: DOCETAXEL
     Indication: LUNG ADENOCARCINOMA
     Dosage: UNK UNK, CYCLIC (9 CYCLES)
     Dates: start: 201412, end: 201507
  9. NINTEDANIB [Suspect]
     Active Substance: NINTEDANIB
     Dosage: 9 CYCLES
     Route: 048
  10. VINORELBINE [Suspect]
     Active Substance: VINORELBINE\VINORELBINE TARTRATE
     Indication: LUNG ADENOCARCINOMA
     Dosage: UNK, CYCLIC (3 CYCLES)
  11. NINTEDANIB [Suspect]
     Active Substance: NINTEDANIB
     Indication: LUNG ADENOCARCINOMA
     Dosage: 100 MG 2 TABLETS 2 TIMES A DAY
     Dates: start: 201412, end: 201507

REACTIONS (9)
  - Oesophagitis [Unknown]
  - Oedema peripheral [Recovering/Resolving]
  - Febrile neutropenia [Unknown]
  - Angina pectoris [Unknown]
  - Ocular discomfort [Recovering/Resolving]
  - Mucosal inflammation [Unknown]
  - Liver disorder [Recovered/Resolved]
  - Hepatotoxicity [Recovered/Resolved]
  - Hypothyroidism [Recovering/Resolving]

NARRATIVE: CASE EVENT DATE: 20150101
